FAERS Safety Report 10806114 (Version 1)
Quarter: 2015Q1

REPORT INFORMATION
  Report Type: Report from Study
  Country: US (occurrence: US)
  Receive Date: 20150217
  Receipt Date: 20150217
  Transmission Date: 20150721
  Serious: No
  Sender: FDA-Public Use
  Company Number: US-ABBVIE-14K-163-1251645-00

PATIENT
  Sex: Female

DRUGS (1)
  1. HUMIRA [Suspect]
     Active Substance: ADALIMUMAB
     Indication: CROHN^S DISEASE
     Dosage: ONE PEN
     Route: 058
     Dates: start: 20140528

REACTIONS (3)
  - Impaired healing [Not Recovered/Not Resolved]
  - Thermal burn [Not Recovered/Not Resolved]
  - Fungal infection [Not Recovered/Not Resolved]
